FAERS Safety Report 10160489 (Version 2)
Quarter: 2014Q2

REPORT INFORMATION
  Report Type: Report from Study
  Country: CA (occurrence: CA)
  Receive Date: 20140508
  Receipt Date: 20140521
  Transmission Date: 20141212
  Serious: Yes (Death)
  Sender: FDA-Public Use
  Company Number: PHHY2014CA055831

PATIENT
  Sex: Male

DRUGS (4)
  1. CLOZARIL [Suspect]
     Indication: SCHIZOPHRENIA
     Dosage: 50 MG, UNK
     Route: 048
     Dates: start: 1999
  2. CELEXA [Concomitant]
     Dosage: 30 MG, PER DAY
  3. HALDOL [Concomitant]
     Dosage: 15 MG, HS
  4. COGENTIN [Concomitant]
     Dosage: 2 MG, HS

REACTIONS (1)
  - Death [Fatal]
